FAERS Safety Report 10006402 (Version 2)
Quarter: 2014Q1

REPORT INFORMATION
  Report Type: Report from Study
  Country: BR (occurrence: BR)
  Receive Date: 20140313
  Receipt Date: 20140313
  Transmission Date: 20141002
  Serious: Yes (Hospitalization, Other)
  Sender: FDA-Public Use
  Company Number: BR-US-EMD SERONO, INC.-7236829

PATIENT
  Age: 25 Year
  Sex: Female

DRUGS (2)
  1. REBIF [Suspect]
     Indication: RELAPSING-REMITTING MULTIPLE SCLEROSIS
     Dates: start: 20120730
  2. BACLOFEN [Concomitant]
     Indication: PRODUCT USED FOR UNKNOWN INDICATION

REACTIONS (8)
  - Urinary tract infection [Recovered/Resolved]
  - Blindness unilateral [Not Recovered/Not Resolved]
  - Immunodeficiency [Unknown]
  - Convulsion [Unknown]
  - Vision blurred [Not Recovered/Not Resolved]
  - Pharyngitis [Recovered/Resolved]
  - Muscle twitching [Unknown]
  - Drug ineffective [Unknown]
